FAERS Safety Report 9498814 (Version 2)
Quarter: 2014Q1

REPORT INFORMATION
  Report Type: Spontaneous
  Country: US (occurrence: None)
  Receive Date: 20130830
  Receipt Date: 20140122
  Transmission Date: 20141002
  Serious: Yes (Hospitalization)
  Sender: FDA-Public Use
  Company Number: US-000769

PATIENT
  Age: 78 Year
  Sex: Female

DRUGS (20)
  1. GATTEX [Suspect]
     Indication: SHORT-BOWEL SYNDROME
     Dosage: TO CONTINUING?
     Route: 058
     Dates: start: 201306
  2. SOLUTIONS FOR PARENTERAL NUTRITION (UNKNOWN) [Concomitant]
  3. GABAPENTIN [Concomitant]
  4. CLONIDINE [Concomitant]
  5. CATAPRESS [Concomitant]
  6. NORVASC [Concomitant]
  7. MORPHINE [Concomitant]
  8. MIRTAZAPINE [Concomitant]
  9. CALCITROL / 00514701/ (UNKNOWN) [Concomitant]
  10. VITAMIN D3 [Concomitant]
  11. LUNESTA [Concomitant]
  12. VIACTIV / 00751501/ [Concomitant]
  13. HYDROCODONE /ACETAMINOPHEN / 00607101 / [Concomitant]
  14. PATANOL (UNKNOWN) [Concomitant]
  15. ISOSORBIDE [Concomitant]
  16. ZOFRAN / 00955301/ [Concomitant]
  17. IBUPROFEN [Concomitant]
  18. ASPIRIN [Concomitant]
  19. ZYRTEC [Concomitant]
  20. NORMAL SALINE [Concomitant]

REACTIONS (4)
  - Musculoskeletal pain [None]
  - Back pain [None]
  - Device related infection [None]
  - Staphylococcal infection [None]
